FAERS Safety Report 7040851-0 (Version None)
Quarter: 2010Q4

REPORT INFORMATION
  Report Type: 
  Country: None (occurrence: None)
  Receive Date: 20101013
  Receipt Date: 20100412
  Transmission Date: 20110411
  Serious: Yes (Other)
  Sender: FDA-Public Use
  Company Number: US-ASTRAZENECA-2009SE13057

PATIENT
  Age: 499 Month
  Sex: Male

DRUGS (14)
  1. SEROQUEL [Suspect]
     Dosage: TAKE 2 TABLETS AT
     Route: 048
     Dates: start: 20001205
  2. PRINIVIL [Concomitant]
     Dates: start: 20001121
  3. ZEBETA [Concomitant]
     Dates: start: 20051206
  4. ZOCOR [Concomitant]
     Dates: start: 20051206
  5. PEPCID [Concomitant]
     Dates: start: 20050317
  6. COGENTIN [Concomitant]
     Dates: start: 20050317
  7. EFFEXOR [Concomitant]
     Dates: start: 20050317
  8. NEURONTIN [Concomitant]
     Dates: start: 20050317
  9. PRILOSEC [Concomitant]
     Dates: start: 20050317
  10. ZYPREXA [Concomitant]
     Dosage: TAKE 1 TABLET AT B
     Dates: start: 20000801
  11. BUSPAR [Concomitant]
     Dosage: TAKE 1 TABLET 3 T
     Dates: start: 20001011
  12. AMITRIPTYLINE HCL [Concomitant]
     Dosage: TAKE 1 TABLET AT
     Dates: start: 20001011
  13. PAXIL [Concomitant]
     Dosage: TAKE 1 TABLET E
     Dates: start: 20001011
  14. ATENOLOL [Concomitant]
     Dosage: TAKE 1 TABLET EVER
     Dates: start: 20010222

REACTIONS (3)
  - NEUROPATHY PERIPHERAL [None]
  - TYPE 1 DIABETES MELLITUS [None]
  - TYPE 2 DIABETES MELLITUS [None]
